FAERS Safety Report 9227414 (Version 1)
Quarter: 2013Q2

REPORT INFORMATION
  Report Type: Spontaneous
  Country: GB (occurrence: GB)
  Receive Date: 20130412
  Receipt Date: 20130412
  Transmission Date: 20140414
  Serious: Yes (Other)
  Sender: FDA-Public Use
  Company Number: PHHY2013GB034027

PATIENT
  Age: 21 Year
  Sex: 0

DRUGS (1)
  1. CLOZAPINE [Suspect]
     Dosage: UNK

REACTIONS (11)
  - Mitral valve incompetence [Recovering/Resolving]
  - Pericardial effusion [Unknown]
  - Myocarditis [Unknown]
  - Left ventricular dysfunction [Recovering/Resolving]
  - Eosinophilic myocarditis [Unknown]
  - Pericarditis constrictive [Unknown]
  - Eosinophilia [Recovered/Resolved]
  - Ejection fraction decreased [Unknown]
  - Chest pain [Unknown]
  - Troponin T increased [Unknown]
  - Electrocardiogram abnormal [Unknown]
